FAERS Safety Report 16445244 (Version 1)
Quarter: 2019Q2

REPORT INFORMATION
  Report Type: Report from Study
  Country: DE (occurrence: DE)
  Receive Date: 20190618
  Receipt Date: 20190618
  Transmission Date: 20190711
  Serious: Yes (Hospitalization)
  Sender: FDA-Public Use
  Company Number: DE-MYLANLABS-2019M1055635

PATIENT
  Sex: Female

DRUGS (6)
  1. LEFLUNOMIDE. [Suspect]
     Active Substance: LEFLUNOMIDE
     Indication: PRODUCT USED FOR UNKNOWN INDICATION
     Dosage: 10 MILLIGRAM (10 MG, UNK)
     Route: 065
     Dates: start: 20170310
  2. METHOTREXATE. [Suspect]
     Active Substance: METHOTREXATE
     Indication: PRODUCT USED FOR UNKNOWN INDICATION
     Dosage: 10 MILLIGRAM (10 MG, UNK)
     Route: 065
     Dates: start: 20170310
  3. METHOTREXATE. [Suspect]
     Active Substance: METHOTREXATE
     Dosage: 10 MILLIGRAM (10 MG, UNK)
     Route: 065
     Dates: start: 20170622
  4. METHOTREXATE. [Suspect]
     Active Substance: METHOTREXATE
     Dosage: 10 MILLIGRAM (10 MG, UNK)
     Route: 065
     Dates: start: 20170911
  5. LEFLUNOMIDE. [Suspect]
     Active Substance: LEFLUNOMIDE
     Dosage: 10 MILLIGRAM (10 MG, UNK)
     Route: 065
     Dates: start: 20170622
  6. LEFLUNOMIDE. [Suspect]
     Active Substance: LEFLUNOMIDE
     Dosage: 10 MILLIGRAM (10 MG, UNK)
     Route: 065
     Dates: start: 20170911

REACTIONS (7)
  - Reactive gastropathy [Unknown]
  - Tooth fracture [Unknown]
  - Diarrhoea [Unknown]
  - Abdominal pain upper [Unknown]
  - Liver disorder [Unknown]
  - Pain [Recovered/Resolved]
  - Depression suicidal [Recovered/Resolved]

NARRATIVE: CASE EVENT DATE: 20170615
